FAERS Safety Report 5413886-9 (Version None)
Quarter: 2007Q3

REPORT INFORMATION
  Report Type: 
  Country: None (occurrence: None)
  Receive Date: 20070814
  Receipt Date: 20070807
  Transmission Date: 20080115
  Serious: Yes (Other)
  Sender: FDA-Public Use
  Company Number: GB-JNJFOC-20070802522

PATIENT
  Sex: Female

DRUGS (1)
  1. RISPERDAL [Suspect]
     Indication: UNEVALUABLE EVENT
     Route: 048

REACTIONS (3)
  - ELECTROCARDIOGRAM T WAVE ABNORMAL [None]
  - ISCHAEMIA [None]
  - LEFT ATRIAL DILATATION [None]
